FAERS Safety Report 21512541 (Version 1)
Quarter: 2022Q4

REPORT INFORMATION
  Report Type: Report from Study
  Country: US (occurrence: US)
  Receive Date: 20221027
  Receipt Date: 20221027
  Transmission Date: 20230112
  Serious: No
  Sender: FDA-Public Use
  Company Number: US-ABBVIE-4173584

PATIENT
  Sex: Female

DRUGS (1)
  1. VENCLEXTA [Suspect]
     Active Substance: VENETOCLAX
     Indication: Chronic lymphocytic leukaemia
     Dosage: TOOK 4 TABLET BY MOUTH ONCE DAILY WITH FOOD AND A FULL GLASS OF WATER (SWALLOW TABLET WHOLE)?FORM...
     Route: 048

REACTIONS (1)
  - Dry eye [Not Recovered/Not Resolved]
